FAERS Safety Report 19059027 (Version 1)
Quarter: 2021Q1

REPORT INFORMATION
  Report Type: Spontaneous
  Country: CN (occurrence: CN)
  Receive Date: 20210325
  Receipt Date: 20210325
  Transmission Date: 20210420
  Serious: Yes (Other)
  Sender: FDA-Public Use
  Company Number: CN-PURDUE-USA-2021-0236319

PATIENT
  Age: 88 Year
  Sex: Male
  Weight: 52 kg

DRUGS (6)
  1. CEFMINOX [Concomitant]
     Active Substance: CEFMINOX SODIUM
     Indication: ANTI-INFECTIVE THERAPY
     Dosage: UNK UNK, BID
     Route: 041
  2. OXYCODONE HYDROCHLORIDE. [Suspect]
     Active Substance: OXYCODONE HYDROCHLORIDE
     Indication: ABDOMINAL PAIN LOWER
  3. OXYCODONE HYDROCHLORIDE. [Suspect]
     Active Substance: OXYCODONE HYDROCHLORIDE
     Indication: INCISION SITE PAIN
     Dosage: 10 MG, Q12H
     Route: 048
     Dates: start: 20190228, end: 20190303
  4. MELOXICAM. [Concomitant]
     Active Substance: MELOXICAM
     Indication: ANALGESIC THERAPY
     Dosage: 1.5 ML, SINGLE
     Route: 030
     Dates: start: 20190224, end: 20190224
  5. BUCINNAZINE HYDROCHLORIDE [Concomitant]
     Indication: ANALGESIC THERAPY
     Dosage: 0.1 G, SINGLE
     Route: 030
     Dates: start: 20190225, end: 20190225
  6. MOXIFLOXACIN HYDROCHLORIDE. [Suspect]
     Active Substance: MOXIFLOXACIN HYDROCHLORIDE
     Indication: ANTI-INFECTIVE THERAPY
     Dosage: 0.4 G, DAILY
     Route: 041
     Dates: start: 20190225, end: 20190301

REACTIONS (5)
  - Poor quality sleep [Unknown]
  - Hyperventilation [Unknown]
  - Dyspnoea [Not Recovered/Not Resolved]
  - Mental disorder [Not Recovered/Not Resolved]
  - Respiratory alkalosis [Unknown]

NARRATIVE: CASE EVENT DATE: 20190228
